FAERS Safety Report 8325485-X (Version None)
Quarter: 2012Q2

REPORT INFORMATION
  Report Type: 
  Country: None (occurrence: None)
  Receive Date: 20120501
  Receipt Date: 20100426
  Transmission Date: 20120825
  Serious: No
  Sender: FDA-Public Use
  Company Number: US-TEVA-2010002391

PATIENT
  Sex: Female
  Weight: 93.524 kg

DRUGS (5)
  1. PRILOSEC [Concomitant]
  2. BETACOR [Concomitant]
  3. ASPIRIN [Concomitant]
  4. CALCIUM [Concomitant]
  5. NUVIGIL [Suspect]
     Indication: HYPERSOMNIA
     Dosage: 150 MILLIGRAM;
     Route: 048
     Dates: start: 20100422, end: 20100423

REACTIONS (1)
  - INSOMNIA [None]
